FAERS Safety Report 10443185 (Version 1)
Quarter: 2014Q3

REPORT INFORMATION
  Report Type: Spontaneous
  Country: GB (occurrence: GB)
  Receive Date: 20140909
  Receipt Date: 20140909
  Transmission Date: 20150326
  Serious: Yes (Death, Other)
  Sender: FDA-Public Use
  Company Number: PHHY2014GB111711

PATIENT
  Age: 80 Year
  Sex: Male

DRUGS (2)
  1. FLUDARABINE [Suspect]
     Active Substance: FLUDARABINE PHOSPHATE
     Indication: CHRONIC LYMPHOCYTIC LEUKAEMIA
     Dates: start: 2009
  2. CYCLOPHOSPHAMIDE. [Suspect]
     Active Substance: CYCLOPHOSPHAMIDE
     Indication: CHRONIC LYMPHOCYTIC LEUKAEMIA
     Dates: start: 2009

REACTIONS (8)
  - Pyrexia [Unknown]
  - Splenomegaly [Unknown]
  - Lymphadenopathy [Unknown]
  - Death [Fatal]
  - Histiocytosis haematophagic [Unknown]
  - Cytomegalovirus infection [Recovered/Resolved]
  - Pancytopenia [Unknown]
  - Neutropenic sepsis [Unknown]
